FAERS Safety Report 4585668-1 (Version None)
Quarter: 2005Q1

REPORT INFORMATION
  Report Type: 
  Country: None (occurrence: None)
  Receive Date: 20050214
  Receipt Date: 20050128
  Transmission Date: 20050727
  Serious: Yes (Hospitalization)
  Sender: FDA-Public Use
  Company Number: THYM-10316

PATIENT
  Age: 27 Year
  Sex: Male
  Weight: 83 kg

DRUGS (9)
  1. THYMOGLOBULIN [Suspect]
     Indication: KIDNEY TRANSPLANT REJECTION
     Dosage: 125  MG QD IV
     Route: 042
     Dates: start: 20040923, end: 20040923
  2. THYMOGLOBULIN [Suspect]
     Indication: KIDNEY TRANSPLANT REJECTION
     Dosage: 125 MG QD IV
     Route: 042
     Dates: start: 20040925, end: 20040926
  3. THYMOGLOBULIN [Suspect]
     Indication: KIDNEY TRANSPLANT REJECTION
     Dosage: 125 MG QE IV
     Route: 042
     Dates: start: 20040929, end: 20040929
  4. CELLCEPT [Concomitant]
  5. VALCYTE [Concomitant]
  6. NYSTATIN [Concomitant]
  7. PROTONIX [Concomitant]
  8. REGLAN [Concomitant]
  9. PROGRAF [Concomitant]

REACTIONS (5)
  - BLOOD CREATININE INCREASED [None]
  - C-REACTIVE PROTEIN INCREASED [None]
  - JOINT STIFFNESS [None]
  - SERUM SICKNESS [None]
  - WHITE BLOOD CELL COUNT INCREASED [None]
